FAERS Safety Report 8334418-1 (Version None)
Quarter: 2012Q2

REPORT INFORMATION
  Report Type: 
  Country: None (occurrence: None)
  Receive Date: 20120503
  Receipt Date: 20110413
  Transmission Date: 20120825
  Serious: No
  Sender: FDA-Public Use
  Company Number: US-BAUSCH-2011BL002529

PATIENT
  Age: 75 Year
  Sex: Female

DRUGS (2)
  1. LOTEMAX [Suspect]
     Indication: POSTOPERATIVE CARE
     Route: 047
     Dates: start: 20110303, end: 20110309
  2. LOTEMAX [Suspect]
     Route: 047
     Dates: start: 20110314, end: 20110315

REACTIONS (5)
  - PAIN [None]
  - DIARRHOEA [None]
  - PAIN IN EXTREMITY [None]
  - BURSITIS [None]
  - NAUSEA [None]
